FAERS Safety Report 15504643 (Version 2)
Quarter: 2018Q4

REPORT INFORMATION
  Report Type: Spontaneous
  Country: US (occurrence: US)
  Receive Date: 20181016
  Receipt Date: 20181228
  Transmission Date: 20190205
  Serious: Yes (Other)
  Sender: FDA-Public Use
  Company Number: US-SA-2017SA248610

PATIENT
  Age: 50 Year
  Sex: Female
  Weight: 77.11 kg

DRUGS (3)
  1. PRAVASTATINE [PRAVASTATIN] [Concomitant]
     Active Substance: PRAVASTATIN
     Dosage: UNK
     Route: 065
     Dates: start: 1999
  2. TAXOTERE [Suspect]
     Active Substance: DOCETAXEL
     Indication: BREAST CANCER FEMALE
     Dosage: 140MG, 190 MG
     Route: 042
     Dates: start: 20090716, end: 20090716
  3. TAXOTERE [Suspect]
     Active Substance: DOCETAXEL
     Dosage: 140MG, 190 MG
     Route: 042
     Dates: start: 20090813, end: 20090813

REACTIONS (5)
  - Emotional distress [Unknown]
  - Anxiety [Unknown]
  - Alopecia [Recovering/Resolving]
  - Impaired quality of life [Unknown]
  - Psychological trauma [Unknown]

NARRATIVE: CASE EVENT DATE: 20090818
